FAERS Safety Report 10421119 (Version 1)
Quarter: 2014Q3

REPORT INFORMATION
  Report Type: Spontaneous
  Country: FR (occurrence: FR)
  Receive Date: 20140830
  Receipt Date: 20140830
  Transmission Date: 20150326
  Serious: Yes (Hospitalization, Other)
  Sender: FDA-Public Use
  Company Number: FR-ABBVIE-14K-056-1275240-00

PATIENT
  Age: 59 Year
  Sex: Male

DRUGS (6)
  1. METHOTREXATE [Concomitant]
     Active Substance: METHOTREXATE
     Indication: RHEUMATIC DISORDER
     Route: 048
     Dates: start: 2006
  2. CORTANCYL [Suspect]
     Active Substance: PREDNISONE
     Route: 048
  3. EUPANTOL [Concomitant]
     Active Substance: PANTOPRAZOLE SODIUM
     Indication: PRODUCT USED FOR UNKNOWN INDICATION
  4. HUMIRA [Suspect]
     Active Substance: ADALIMUMAB
     Indication: RHEUMATIC DISORDER
     Dates: start: 2006, end: 20060207
  5. CORTANCYL [Suspect]
     Active Substance: PREDNISONE
     Indication: RHEUMATIC DISORDER
     Route: 048
     Dates: start: 2006, end: 201203
  6. ACTISKENAN [Concomitant]
     Active Substance: MORPHINE SULFATE
     Indication: PRODUCT USED FOR UNKNOWN INDICATION

REACTIONS (7)
  - Arterial thrombosis [Recovered/Resolved]
  - Peripheral artery thrombosis [Unknown]
  - Muscle spasms [Unknown]
  - Beta-2 glycoprotein antibody positive [Unknown]
  - Pain in extremity [Recovered/Resolved]
  - Pelvic venous thrombosis [Recovered/Resolved]
  - Cardiolipin antibody positive [Unknown]

NARRATIVE: CASE EVENT DATE: 20120207
